FAERS Safety Report 5076415-8 (Version None)
Quarter: 2006Q3

REPORT INFORMATION
  Report Type: 
  Country: None (occurrence: None)
  Receive Date: 20060810
  Receipt Date: 20060731
  Transmission Date: 20061208
  Serious: Yes (Hospitalization)
  Sender: FDA-Public Use
  Company Number: US-JNJFOC-20060800162

PATIENT
  Sex: Female
  Weight: 24 kg

DRUGS (4)
  1. REMICADE [Suspect]
     Indication: CROHN'S DISEASE
  2. AZATHIOPRINE SODIUM [Concomitant]
  3. PREDNISONE [Concomitant]
  4. PREVACID [Concomitant]

REACTIONS (4)
  - CROHN'S DISEASE [None]
  - HYPONATRAEMIA [None]
  - RED BLOOD CELL SEDIMENTATION RATE INCREASED [None]
  - WHITE BLOOD CELL COUNT INCREASED [None]
